FAERS Safety Report 23149765 (Version 1)
Quarter: 2023Q4

REPORT INFORMATION
  Report Type: Spontaneous
  Country: US (occurrence: None)
  Receive Date: 20231104
  Receipt Date: 20231104
  Transmission Date: 20240109
  Serious: Yes (Other)
  Sender: FDA-Public Use
  Company Number: None

PATIENT
  Age: 76 Year
  Sex: Female
  Weight: 105.3 kg

DRUGS (8)
  1. TYRVAYA [Suspect]
     Active Substance: VARENICLINE TARTRATE
     Indication: Dry eye
     Dosage: OTHER QUANTITY : 3 3;?FREQUENCY : EVERY 12 HOURS;?
     Route: 055
     Dates: start: 20230218
  2. UNSPECIFIED INGREDIENT [Concomitant]
     Active Substance: UNSPECIFIED INGREDIENT
  3. Famantodine [Concomitant]
  4. ZALEPLON [Concomitant]
     Active Substance: ZALEPLON
  5. DEVICE [Concomitant]
     Active Substance: DEVICE
  6. COENZYME Q10 [Concomitant]
     Active Substance: DIETARY SUPPLEMENT\UBIDECARENONE
  7. VITAMIN D3 [Concomitant]
     Active Substance: CHOLECALCIFEROL
  8. Colon Probiotic [Concomitant]

REACTIONS (3)
  - Anosmia [None]
  - Therapy cessation [None]
  - Nasal congestion [None]

NARRATIVE: CASE EVENT DATE: 20230218
